FAERS Safety Report 19197488 (Version 1)
Quarter: 2021Q2

REPORT INFORMATION
  Report Type: Spontaneous
  Country: NL (occurrence: NL)
  Receive Date: 20210430
  Receipt Date: 20210430
  Transmission Date: 20210717
  Serious: Yes (Other)
  Sender: FDA-Public Use
  Company Number: NL-TEVA-2021-NL-1905471

PATIENT
  Age: 39 Year
  Sex: Female
  Weight: 100 kg

DRUGS (3)
  1. QUETIAPINE TABLET MGA 300MG / BRAND NAME NOT SPECIFIED [Suspect]
     Active Substance: QUETIAPINE
     Indication: PSYCHOTIC DISORDER
     Dosage: 1DD 450 MG,THERAPY END DATE  ASKU
     Dates: start: 202009
  2. METHYLPREDNISOLON INJECTIEPOEDER 40MG / BRAND NAME NOT SPECIFIED [Suspect]
     Active Substance: METHYLPREDNISOLONE
     Dosage: 1X PER DAY 1000 MG, FOR 3 DAYS
     Dates: start: 20210131, end: 20210202
  3. DEPO?PROVERA [Concomitant]
     Active Substance: MEDROXYPROGESTERONE ACETATE
     Dosage: THERAPY START DATE ASKU, THERAPY END DATE ASKU\, 150 MG / ML

REACTIONS (2)
  - Lymphopenia [Not Recovered/Not Resolved]
  - Eosinopenia [Not Recovered/Not Resolved]

NARRATIVE: CASE EVENT DATE: 20210223
